FAERS Safety Report 5875193-X (Version None)
Quarter: 2008Q3

REPORT INFORMATION
  Report Type: 
  Country: None (occurrence: None)
  Receive Date: 20080909
  Receipt Date: 20080829
  Transmission Date: 20090109
  Serious: Yes (Other)
  Sender: FDA-Public Use
  Company Number: US-JNJFOC-20080500548

PATIENT
  Sex: Male
  Weight: 106.14 kg

DRUGS (9)
  1. REMICADE [Suspect]
     Route: 042
  2. REMICADE [Suspect]
     Indication: CROHN'S DISEASE
     Route: 042
  3. SYNTHROID [Concomitant]
  4. ASACOL [Concomitant]
  5. TRICOR [Concomitant]
  6. JANUVIA [Concomitant]
  7. BYETA [Concomitant]
  8. NEXIUM [Concomitant]
  9. CHOLESTYRAMINE [Concomitant]
     Indication: DIARRHOEA

REACTIONS (6)
  - APHTHOUS STOMATITIS [None]
  - BASAL CELL CARCINOMA [None]
  - MALIGNANT MELANOMA [None]
  - PAIN OF SKIN [None]
  - PERNICIOUS ANAEMIA [None]
  - STAPHYLOCOCCAL INFECTION [None]
